FAERS Safety Report 16269318 (Version 1)
Quarter: 2019Q2

REPORT INFORMATION
  Report Type: Report from Study
  Country: FR (occurrence: FR)
  Receive Date: 20190503
  Receipt Date: 20190503
  Transmission Date: 20190711
  Serious: Yes (Life-Threatening, Hospitalization, Other)
  Sender: FDA-Public Use
  Company Number: FR-CELGENEUS-FRA-20190307157

PATIENT
  Age: 66 Year
  Sex: Male

DRUGS (2)
  1. TEMOZOLOMIDE. [Suspect]
     Active Substance: TEMOZOLOMIDE
     Indication: GLIOBLASTOMA
     Route: 048
  2. MARIZOMIB [Suspect]
     Active Substance: MARIZOMIB
     Indication: GLIOBLASTOMA
     Route: 041
     Dates: start: 20190304, end: 20190318

REACTIONS (6)
  - Anal abscess [Recovered/Resolved]
  - Delirium [Recovered/Resolved]
  - Confusional state [Not Recovered/Not Resolved]
  - Sepsis [Not Recovered/Not Resolved]
  - Agitation [Not Recovered/Not Resolved]
  - Motor dysfunction [Not Recovered/Not Resolved]

NARRATIVE: CASE EVENT DATE: 20190305
